FAERS Safety Report 11744190 (Version 1)
Quarter: 2015Q4

REPORT INFORMATION
  Report Type: Spontaneous
  Country: US (occurrence: US)
  Receive Date: 20151116
  Receipt Date: 20151116
  Transmission Date: 20160304
  Serious: Yes (Other)
  Sender: FDA-Public Use
  Company Number: US-AMARIN PHARMA, INC.-2015AMR000156

PATIENT
  Age: 62 Year
  Sex: Male

DRUGS (1)
  1. VASCEPA [Suspect]
     Active Substance: ICOSAPENT ETHYL
     Indication: PRODUCT USED FOR UNKNOWN INDICATION
     Route: 048
     Dates: start: 2013, end: 20151103

REACTIONS (5)
  - Oropharyngeal pain [None]
  - Dysphagia [Recovered/Resolved]
  - Choking [Recovered/Resolved]
  - Loss of consciousness [Recovered/Resolved]
  - Foreign body [None]

NARRATIVE: CASE EVENT DATE: 20151030
